FAERS Safety Report 15712713 (Version 1)
Quarter: 2018Q4

REPORT INFORMATION
  Report Type: Spontaneous
  Country: US (occurrence: US)
  Receive Date: 20181211
  Receipt Date: 20181211
  Transmission Date: 20190205
  Serious: Yes (Disabling)
  Sender: FDA-Public Use
  Company Number: None

PATIENT
  Age: 80 Year
  Weight: 96.3 kg

DRUGS (1)
  1. BOTOX [Suspect]
     Active Substance: ONABOTULINUMTOXINA
     Indication: DROPPED HEAD SYNDROME
     Route: 030
     Dates: start: 20181121, end: 20181121

REACTIONS (4)
  - Influenza like illness [None]
  - Drug ineffective [None]
  - Condition aggravated [None]
  - Dropped head syndrome [None]

NARRATIVE: CASE EVENT DATE: 20181121
